FAERS Safety Report 18751010 (Version 3)
Quarter: 2021Q1

REPORT INFORMATION
  Report Type: Other
  Country: SE (occurrence: SE)
  Receive Date: 20210118
  Receipt Date: 20210301
  Transmission Date: 20210419
  Serious: Yes (Other)
  Sender: FDA-Public Use
  Company Number: SE-ROCHE-2749475

PATIENT

DRUGS (1)
  1. SOMATROPIN. [Suspect]
     Active Substance: SOMATROPIN
     Indication: GROWTH HORMONE DEFICIENCY
     Route: 065

REACTIONS (19)
  - Cor pulmonale [Unknown]
  - Cerebrovascular disorder [Unknown]
  - Cardiovascular disorder [Unknown]
  - Cerebral haemorrhage [Unknown]
  - Subarachnoid haemorrhage [Unknown]
  - Cardiac valve disease [Unknown]
  - Intermittent claudication [Unknown]
  - Cardiac failure [Unknown]
  - Embolism arterial [Unknown]
  - Myocardial ischaemia [Unknown]
  - Cardiomyopathy [Unknown]
  - Hypertension [Unknown]
  - Aneurysm [Unknown]
  - Arrhythmia [Unknown]
  - Cerebral infarction [Unknown]
  - Cerebrovascular accident [Unknown]
  - Transient ischaemic attack [Unknown]
  - Arteriosclerosis [Unknown]
  - Arterial thrombosis [Unknown]
